FAERS Safety Report 6204699-9 (Version None)
Quarter: 2009Q2

REPORT INFORMATION
  Report Type: 
  Country: None (occurrence: None)
  Receive Date: 20090527
  Receipt Date: 20090519
  Transmission Date: 20091009
  Serious: Yes (Other)
  Sender: FDA-Public Use
  Company Number: PHHY2009DE19905

PATIENT
  Age: 68 Year
  Sex: Female

DRUGS (4)
  1. PROVAS [Suspect]
     Dosage: 0.5 DF, QD
     Dates: start: 20090403
  2. PROVAS [Suspect]
     Dosage: 1 DF, QD
     Dates: start: 20090519
  3. BETA BLOCKING AGENTS [Concomitant]
  4. HYDROCHLOROTHIAZIDE [Concomitant]

REACTIONS (2)
  - BLOOD PRESSURE INADEQUATELY CONTROLLED [None]
  - EPISTAXIS [None]
